FAERS Safety Report 4510105-2 (Version None)
Quarter: 2004Q4

REPORT INFORMATION
  Report Type: 
  Country: None (occurrence: None)
  Receive Date: 20041124
  Receipt Date: 20041112
  Transmission Date: 20050328
  Serious: Yes (Other)
  Sender: FDA-Public Use
  Company Number: US-JNJFOC-20041103820

PATIENT
  Sex: Female
  Weight: 95.26 kg

DRUGS (10)
  1. INFLIXIMAB [Suspect]
     Indication: RHEUMATOID ARTHRITIS
     Route: 042
  2. DILANTIN [Concomitant]
  3. PHENOBARBITAL TAB [Concomitant]
  4. PLAQUENIL [Concomitant]
  5. OSCAL 500-D [Concomitant]
  6. OSCAL 500-D [Concomitant]
     Dosage: 3 TABS DAILY
  7. METHOTREXATE [Concomitant]
  8. FOLIC ACID [Concomitant]
  9. CELEXA [Concomitant]
  10. ZANTAC [Concomitant]

REACTIONS (1)
  - SKIN CANCER [None]
